FAERS Safety Report 6576233-5 (Version None)
Quarter: 2010Q1

REPORT INFORMATION
  Report Type: 
  Country: None (occurrence: None)
  Receive Date: 20100209
  Receipt Date: 20100202
  Transmission Date: 20100710
  Serious: Yes (Hospitalization)
  Sender: FDA-Public Use
  Company Number: US-BRISTOL-MYERS SQUIBB COMPANY-14961759

PATIENT
  Age: 81 Year
  Sex: Male
  Weight: 80 kg

DRUGS (17)
  1. CISPLATIN [Suspect]
     Indication: OESOPHAGEAL ADENOCARCINOMA
     Dosage: LAST RECEIVED BEFORE EVENT: 20-JAN-2010.
     Dates: start: 20091221, end: 20100120
  2. TAXOL [Suspect]
     Indication: OESOPHAGEAL ADENOCARCINOMA
     Dosage: START DATE OF COURSE ASSOCIATED WITH EVENT: 20-JAN-2010.
     Dates: start: 20091221, end: 20100120
  3. RADIATION THERAPY [Suspect]
     Indication: OESOPHAGEAL ADENOCARCINOMA
     Dosage: DF=GY OF EXTERNAL BEAM 3D.NO. OF FRAC:26;NO OF ELAPSED DAYS:0
     Dates: start: 20091221
  4. ASPIRIN [Concomitant]
     Dosage: TAB
     Route: 048
  5. LORAZEPAM [Concomitant]
     Dosage: FREQUENY=Q6 HOURS
     Route: 048
  6. ONDANSETRON [Concomitant]
     Dosage: PRN: 3 TIMES A DAY
     Route: 048
  7. TELMISARTAN + HCTZ [Concomitant]
     Dosage: 1 DF=80-25MG
     Route: 048
  8. CLOPIDOGREL BISULFATE [Concomitant]
     Route: 048
  9. DEXAMETHASONE [Concomitant]
  10. DOCUSATE [Concomitant]
     Dosage: 1 TAB
  11. OMEGA 3 FATTY ACID [Concomitant]
     Dosage: 1 DF=200-1,000MG
     Route: 048
  12. PANTOPRAZOLE [Concomitant]
     Dosage: 20MG,2TABS DAILY
     Route: 048
  13. POLYETHYLENE GLYCOL 3350 [Concomitant]
     Dosage: 17GRAM ORAL DISSOLVE IN WATER DAILY
     Route: 048
  14. POTASSIUM CHLORIDE [Concomitant]
     Route: 048
  15. PRAVASTATIN SODIUM [Concomitant]
     Dosage: 1TAB
     Route: 048
  16. PROCHLORPERAZINE [Concomitant]
     Dosage: FREQUENCY=Q6 HOURS
  17. SUCRALFATE [Concomitant]
     Dosage: 1TAB BEFOR MEALS AND AT BED
     Route: 048

REACTIONS (3)
  - DYSPHAGIA [None]
  - OESOPHAGEAL PAIN [None]
  - OESOPHAGITIS [None]
